FAERS Safety Report 10692751 (Version 1)
Quarter: 2014Q4

REPORT INFORMATION
  Report Type: Spontaneous
  Country: US (occurrence: None)
  Receive Date: 20141218
  Receipt Date: 20141218
  Transmission Date: 20150529
  Serious: No
  Sender: FDA-Public Use
  Company Number: MW 14003

PATIENT
  Age: 55 Year
  Sex: Female

DRUGS (1)
  1. KETAMINE [Suspect]
     Active Substance: KETAMINE
     Indication: PAIN
     Dosage: 30 DAY SUPPLY, 3/0.5/2/1/0.1/2/2 %
     Dates: start: 20141125

REACTIONS (3)
  - Sedation [None]
  - Incorrect dose administered [None]
  - Incorrect route of drug administration [None]

NARRATIVE: CASE EVENT DATE: 20141211
